FAERS Safety Report 20137510 (Version 3)
Quarter: 2024Q3

REPORT INFORMATION
  Report Type: Report from Study
  Country: IL (occurrence: IL)
  Receive Date: 20211201
  Receipt Date: 20240808
  Transmission Date: 20241016
  Serious: Yes (Death, Hospitalization, Other)
  Sender: ABBVIE
  Company Number: IL-ABBVIE-21K-082-4178331-00

PATIENT
  Age: 85 Year
  Sex: Male
  Weight: 63 kg

DRUGS (20)
  1. VENETOCLAX [Suspect]
     Active Substance: VENETOCLAX
     Indication: Chronic lymphocytic leukaemia
     Dosage: DOSE INCREASE ACCORDING TO VENETOCLAX DOSE TITRATION SCHEME
     Route: 048
     Dates: start: 20211018, end: 20211019
  2. VENETOCLAX [Suspect]
     Active Substance: VENETOCLAX
     Indication: Chronic lymphocytic leukaemia
     Dosage: DOSE INCREASE ACCORDING TO VENETOCLAX DOSE TITRATION SCHEME
     Route: 048
     Dates: start: 20211020, end: 20211021
  3. VENETOCLAX [Suspect]
     Active Substance: VENETOCLAX
     Indication: Chronic lymphocytic leukaemia
     Dosage: 100 MG, DOSE INCREASE ACCORDING TO VENETOCLAX DOSE TITRATION SCHEME
     Route: 048
     Dates: start: 20211023, end: 20211023
  4. VENETOCLAX [Suspect]
     Active Substance: VENETOCLAX
     Indication: Chronic lymphocytic leukaemia
     Dosage: 400 MG, DOSE INCREASE ACCORDING TO VENETOCLAX DOSE TITRATION SCHEME
     Route: 048
     Dates: start: 20211026, end: 20211117
  5. VENETOCLAX [Suspect]
     Active Substance: VENETOCLAX
     Indication: Chronic lymphocytic leukaemia
     Dosage: 200 MG, DOSE INCREASE ACCORDING TO VENETOCLAX DOSE TITRATION SCHEME
     Route: 048
     Dates: start: 20211024, end: 20211025
  6. RITUXIMAB [Suspect]
     Active Substance: RITUXIMAB
     Indication: Chronic lymphocytic leukaemia
     Dosage: CYCLE 1
     Route: 065
     Dates: start: 20211006, end: 20211006
  7. SOPA K [Concomitant]
     Indication: Mineral supplementation
     Dates: start: 20211028, end: 20211028
  8. ALLOPURINOL [Concomitant]
     Active Substance: ALLOPURINOL
     Indication: Prophylaxis
     Dates: start: 20211006, end: 20211006
  9. LIPITOR [Concomitant]
     Active Substance: ATORVASTATIN CALCIUM
     Indication: Blood cholesterol increased
     Dates: start: 20171205
  10. CEFAZOLIN [Concomitant]
     Active Substance: CEFAZOLIN
     Indication: Bacterial infection
     Dates: start: 20211028, end: 20211111
  11. SOPA K [Concomitant]
     Indication: Mineral supplementation
     Dates: start: 20211028, end: 20211028
  12. CEFAZOLIN [Concomitant]
     Active Substance: CEFAZOLIN
     Indication: Bacterial infection
     Dates: start: 20211028, end: 20211111
  13. EUTHYROX [Concomitant]
     Active Substance: LEVOTHYROXINE SODIUM
     Indication: Hypothyroidism
     Dates: start: 20211110, end: 20211117
  14. BACTROBAN [Concomitant]
     Active Substance: MUPIROCIN CALCIUM
     Indication: Skin infection
     Dates: start: 20211110, end: 20211116
  15. Fusid [Concomitant]
     Indication: Diuretic therapy
     Dates: start: 20211107, end: 20211114
  16. LOSEC [Concomitant]
     Active Substance: OMEPRAZOLE
     Indication: Gastrooesophageal reflux disease
     Dates: start: 20211028, end: 20211117
  17. ENOXAPARIN SODIUM [Concomitant]
     Active Substance: ENOXAPARIN SODIUM
     Indication: Anticoagulant therapy
     Dates: start: 20211028, end: 20211117
  18. SLOW K [Concomitant]
     Active Substance: POTASSIUM CHLORIDE
     Indication: Mineral supplementation
     Dates: start: 20211117, end: 20211117
  19. ELIQUIS [Concomitant]
     Active Substance: APIXABAN
     Indication: Anticoagulant therapy
     Dates: start: 20211115, end: 20211117
  20. BISOPROLOL FUMARATE [Concomitant]
     Active Substance: BISOPROLOL FUMARATE
     Indication: Coronary artery disease
     Dates: start: 20211028, end: 20211117

REACTIONS (2)
  - COVID-19 [Fatal]
  - Staphylococcal sepsis [Recovered/Resolved]

NARRATIVE: CASE EVENT DATE: 20211006
